FAERS Safety Report 7570840-9 (Version None)
Quarter: 2011Q2

REPORT INFORMATION
  Report Type: 
  Country: None (occurrence: None)
  Receive Date: 20110624
  Receipt Date: 20110620
  Transmission Date: 20111010
  Serious: Yes (Other)
  Sender: FDA-Public Use
  Company Number: US-PFIZER INC-2011118203

PATIENT
  Sex: Male

DRUGS (2)
  1. SUTENT [Suspect]
     Dosage: 50 MG, 1X/DAY FOR 28 DAYS Q 42 DAY)
     Dates: start: 20110416
  2. SUTENT [Suspect]
     Dosage: 50 MG, 1X/DAY, FOR 28 DAYS Q 42 DAYS
     Route: 048
     Dates: start: 20110528

REACTIONS (2)
  - OROPHARYNGEAL SPASM [None]
  - WEIGHT DECREASED [None]
